FAERS Safety Report 14137281 (Version 1)
Quarter: 2017Q4

REPORT INFORMATION
  Report Type: Spontaneous
  Country: US (occurrence: US)
  Receive Date: 20171027
  Receipt Date: 20171027
  Transmission Date: 20180321
  Serious: No
  Sender: FDA-Public Use
  Company Number: US-GLAXOSMITHKLINE-US2017164053

PATIENT
  Age: 73 Year
  Sex: Female

DRUGS (1)
  1. SIMPLY RIGHT NICOTINE [Suspect]
     Active Substance: NICOTINE
     Indication: SMOKING CESSATION THERAPY
     Dosage: 21 MG, UNK
     Dates: start: 20170909, end: 20170912

REACTIONS (3)
  - Application site haemorrhage [Unknown]
  - Application site pruritus [Unknown]
  - Application site reaction [Unknown]
